FAERS Safety Report 4808215-5 (Version None)
Quarter: 2005Q4

REPORT INFORMATION
  Report Type: 
  Country: None (occurrence: None)
  Receive Date: 20051025
  Receipt Date: 20050217
  Transmission Date: 20060501
  Serious: Yes (Hospitalization)
  Sender: FDA-Public Use
  Company Number: FR-BOEHRINGER INGELHEIM PHARMACEUTICALS, INC.-2005-FF-00117FF

PATIENT
  Sex: Male
  Weight: 87 kg

DRUGS (4)
  1. TIPRANAVIR + RITONAVIR CO-ADMIN [Suspect]
     Indication: HIV INFECTION
     Dosage: TPV/RTV 500/200 MG B.I.D.
     Route: 048
     Dates: start: 20040413, end: 20041216
  2. TIPRANAVIR + RITONAVIR CO-ADMIN [Suspect]
     Dosage: TPV/RTV 500/100 MG B.I.D.
     Route: 048
     Dates: start: 20041216, end: 20050407
  3. FUZEON [Concomitant]
     Indication: HIV INFECTION
     Route: 058
  4. TENORMIN [Concomitant]
     Indication: HYPERTENSION
     Route: 048

REACTIONS (2)
  - ARRHYTHMIA [None]
  - ATRIAL FIBRILLATION [None]
